FAERS Safety Report 25844193 (Version 1)
Quarter: 2025Q3

REPORT INFORMATION
  Report Type: Report from Study
  Country: US (occurrence: US)
  Receive Date: 20250925
  Receipt Date: 20250925
  Transmission Date: 20251021
  Serious: Yes (Other)
  Sender: TAKEDA
  Company Number: US-TAKEDA-2025TUS083227

PATIENT
  Sex: Female

DRUGS (1)
  1. MESALAMINE [Suspect]
     Active Substance: MESALAMINE
     Indication: Product used for unknown indication

REACTIONS (6)
  - Inflammatory bowel disease [Unknown]
  - Cardiac failure congestive [Unknown]
  - Colitis ulcerative [Unknown]
  - Arthritis [Unknown]
  - Pulmonary mass [Unknown]
  - Product use issue [Unknown]
